FAERS Safety Report 8512602 (Version 2)
Quarter: 2012Q4

REPORT INFORMATION
  Report Type: 
  Country: US (occurrence: US)
  Receive Date: 20120413
  Receipt Date: 20121221
  Transmission Date: 20130627
  Serious: No
  Sender: FDA-Public Use
  Company Number: US-ASTRAZENECA-2011SE43487

PATIENT
  Age: 49 Year
  Sex: Female

DRUGS (2)
  1. NEXIUM [Suspect]
     Route: 048
  2. CLOBEX [Concomitant]

REACTIONS (4)
  - Lichen planus [Unknown]
  - Lichen planus [Unknown]
  - Throat irritation [Unknown]
  - Throat irritation [Unknown]
